FAERS Safety Report 7362054-2 (Version None)
Quarter: 2011Q1

REPORT INFORMATION
  Report Type: 
  Country: None (occurrence: None)
  Receive Date: 20110318
  Receipt Date: 20110315
  Transmission Date: 20110831
  Serious: Yes (Other)
  Sender: FDA-Public Use
  Company Number: BR-PFIZER INC-2011056917

PATIENT
  Sex: Female

DRUGS (3)
  1. FLUOXETINE [Concomitant]
     Dosage: UNK
     Dates: start: 20070101
  2. FRONTAL [Suspect]
     Indication: ANXIETY
     Dosage: 0.5 MG, 1X/DAY (1 TABLET, DAILY)
     Route: 048
     Dates: start: 20070101
  3. DICLOFENAC [Concomitant]
     Dosage: UNK
     Dates: start: 20030101

REACTIONS (5)
  - MALAISE [None]
  - DYSPNOEA [None]
  - CHEST PAIN [None]
  - HYPERHIDROSIS [None]
  - DIZZINESS [None]
